FAERS Safety Report 8835632 (Version 1)
Quarter: 2012Q4

REPORT INFORMATION
  Report Type: 
  Country: US (occurrence: US)
  Receive Date: 20121011
  Receipt Date: 20121011
  Transmission Date: 20130627
  Serious: Yes (Other)
  Sender: FDA-Public Use
  Company Number: US-JNJFOC-20121004380

PATIENT
  Age: 83 Year
  Sex: Female

DRUGS (2)
  1. NICOTINE POLACRILEX GUM [Suspect]
     Indication: NICOTINE DEPENDENCE
     Route: 048
     Dates: start: 1972
  2. NICOTINE POLACRILEX GUM [Suspect]
     Indication: NICOTINE DEPENDENCE
     Route: 048
     Dates: start: 1972

REACTIONS (3)
  - Nicotine dependence [Not Recovered/Not Resolved]
  - Intentional drug misuse [Unknown]
  - Product quality issue [Unknown]
